FAERS Safety Report 8081148-X (Version None)
Quarter: 2012Q1

REPORT INFORMATION
  Report Type: 
  Country: None (occurrence: None)
  Receive Date: 20120130
  Receipt Date: 20120124
  Transmission Date: 20120608
  Serious: Yes (Hospitalization)
  Sender: FDA-Public Use
  Company Number: US-GLAXOSMITHKLINE-A0962933A

PATIENT
  Age: 21 Year
  Sex: Female

DRUGS (3)
  1. INJECTION [Suspect]
     Indication: PRODUCT USED FOR UNKNOWN INDICATION
  2. LAMICTAL [Suspect]
     Indication: AFFECTIVE DISORDER
     Dosage: 25MG PER DAY
     Route: 048
     Dates: start: 20120109, end: 20120117
  3. LUNESTA [Concomitant]

REACTIONS (9)
  - HEADACHE [None]
  - PALPITATIONS [None]
  - RASH [None]
  - CHILLS [None]
  - URTICARIA [None]
  - HEART RATE INCREASED [None]
  - PYREXIA [None]
  - ALTERED VISUAL DEPTH PERCEPTION [None]
  - SKIN WARM [None]
